FAERS Safety Report 18929595 (Version 1)
Quarter: 2021Q1

REPORT INFORMATION
  Report Type: Spontaneous
  Country: US (occurrence: US)
  Receive Date: 20210223
  Receipt Date: 20210223
  Transmission Date: 20210420
  Serious: No
  Sender: FDA-Public Use
  Company Number: US-MYLANLABS-2021M1009735

PATIENT
  Sex: Male

DRUGS (1)
  1. WIXELA INHUB [Suspect]
     Active Substance: FLUTICASONE PROPIONATE\SALMETEROL XINAFOATE
     Indication: ASTHMA
     Dosage: 250/50 MICROGRAM, BID
     Route: 055

REACTIONS (5)
  - Dysuria [Recovered/Resolved]
  - Intentional product misuse [Recovered/Resolved]
  - Asthma [Recovering/Resolving]
  - Burning sensation [Recovered/Resolved]
  - Blood urine present [Recovered/Resolved]
